FAERS Safety Report 8764728 (Version 1)
Quarter: 2012Q4

REPORT INFORMATION
  Report Type: 
  Country: US (occurrence: US)
  Receive Date: 20120901
  Receipt Date: 20120901
  Transmission Date: 20130627
  Serious: Yes (Hospitalization)
  Sender: FDA-Public Use
  Company Number: US-PFIZER INC-2012211917

PATIENT
  Age: 72 Year
  Sex: Female

DRUGS (3)
  1. ADVIL [Suspect]
     Indication: ARTHRITIS
     Dosage: UNK, TID
     Route: 048
     Dates: start: 2011, end: 201207
  2. PRADAXA [Suspect]
     Indication: ATRIAL FIBRILLATION
     Dosage: 300 mg, 2x/day (one capsule twice daily BID)
     Route: 048
     Dates: start: 201206, end: 201207
  3. LEVOTHYROXINE [Concomitant]
     Indication: THYROID DISORDER
     Dosage: 50 ug, 1x/day
     Route: 048
     Dates: start: 2007

REACTIONS (2)
  - Gastric haemorrhage [Recovered/Resolved]
  - Asthenia [Not Recovered/Not Resolved]
